FAERS Safety Report 9296475 (Version 1)
Quarter: 2013Q2

REPORT INFORMATION
  Report Type: Spontaneous
  Country: DE (occurrence: DE)
  Receive Date: 20130517
  Receipt Date: 20130517
  Transmission Date: 20140414
  Serious: Yes (Life-Threatening, Hospitalization)
  Sender: FDA-Public Use
  Company Number: DE-ASTRAZENECA-2013SE33651

PATIENT
  Age: 45 Year
  Sex: Female

DRUGS (3)
  1. QUETIAPINE [Suspect]
     Dosage: TOTAL DOSE 18 G.
     Route: 048
  2. ZOPICLONE [Suspect]
  3. LORAZEPAM [Suspect]

REACTIONS (3)
  - Overdose [Unknown]
  - Coma [Recovered/Resolved]
  - Bezoar [Recovered/Resolved]
